FAERS Safety Report 17072398 (Version 1)
Quarter: 2019Q4

REPORT INFORMATION
  Report Type: Spontaneous
  Country: US (occurrence: US)
  Receive Date: 20191123
  Receipt Date: 20191123
  Transmission Date: 20200122
  Serious: Yes (Disabling)
  Sender: FDA-Public Use
  Company Number: None

PATIENT
  Age: 8 Year
  Sex: Female
  Weight: 34.2 kg

DRUGS (4)
  1. GLUTATHIONE - 1 PUMP DAILY [Concomitant]
  2. BIOCIDIN BEFORE MEALS 2X DAILY [Concomitant]
  3. MIRALAX [Suspect]
     Active Substance: POLYETHYLENE GLYCOL 3350
     Indication: CONSTIPATION
     Route: 048
     Dates: start: 20191011, end: 20191105
  4. LIPOSOMAL VITAMIN C 2.5 MG DAILY [Concomitant]

REACTIONS (4)
  - Muscle spasms [None]
  - Screaming [None]
  - Generalised tonic-clonic seizure [None]
  - Hyperhidrosis [None]

NARRATIVE: CASE EVENT DATE: 20191017
